FAERS Safety Report 14561872 (Version 1)
Quarter: 2018Q1

REPORT INFORMATION
  Report Type: Spontaneous
  Country: US (occurrence: US)
  Receive Date: 20180221
  Receipt Date: 20180221
  Transmission Date: 20180509
  Serious: Yes (Other)
  Sender: FDA-Public Use
  Company Number: None

PATIENT
  Age: 62 Year
  Sex: Male
  Weight: 87.75 kg

DRUGS (4)
  1. PANTOPRAZOLE [Concomitant]
     Active Substance: PANTOPRAZOLE
  2. LISINAPRIL [Concomitant]
  3. MULTIHANCE [Suspect]
     Active Substance: GADOBENATE DIMEGLUMINE
     Indication: HEADACHE
     Dosage: ?          QUANTITY:1 INJECTION(S);OTHER FREQUENCY:ONCE;?
     Route: 042
  4. OXYCODONE [Concomitant]
     Active Substance: OXYCODONE

REACTIONS (6)
  - Sensitivity of teeth [None]
  - Hypersensitivity [None]
  - Throat irritation [None]
  - Dysphonia [None]
  - Dysgeusia [None]
  - Gastrooesophageal reflux disease [None]

NARRATIVE: CASE EVENT DATE: 20180130
